FAERS Safety Report 4414272-0 (Version None)
Quarter: 2004Q3

REPORT INFORMATION
  Report Type: 
  Country: None (occurrence: None)
  Receive Date: 20040803
  Receipt Date: 20040730
  Transmission Date: 20050211
  Serious: Yes (Death)
  Sender: FDA-Public Use
  Company Number: PHEH2004US08289

PATIENT
  Age: 43 Year
  Sex: Male

DRUGS (2)
  1. CLOZARIL [Suspect]
     Dosage: UNK, UNK
     Route: 048
  2. DETROL [Suspect]

REACTIONS (1)
  - ARRHYTHMIA [None]
